FAERS Safety Report 23020092 (Version 1)
Quarter: 2023Q4

REPORT INFORMATION
  Report Type: Report from Study
  Country: US (occurrence: US)
  Receive Date: 20231003
  Receipt Date: 20231003
  Transmission Date: 20240110
  Serious: Yes (Other)
  Sender: FDA-Public Use
  Company Number: US-ABBVIE-5430442

PATIENT
  Sex: Female

DRUGS (1)
  1. HUMIRA [Suspect]
     Active Substance: ADALIMUMAB
     Indication: Psoriatic arthropathy
     Dosage: FORM STRENGTH: 40 MILLIGRAM?CF
     Route: 058
     Dates: start: 20230626

REACTIONS (3)
  - Temporomandibular joint syndrome [Recovering/Resolving]
  - Osteoporosis [Unknown]
  - Exostosis [Unknown]

NARRATIVE: CASE EVENT DATE: 20230101
